FAERS Safety Report 9021914 (Version 4)
Quarter: 2013Q4

REPORT INFORMATION
  Report Type: Spontaneous
  Country: JP (occurrence: JP)
  Receive Date: 20130118
  Receipt Date: 20131122
  Transmission Date: 20140711
  Serious: Yes (Other)
  Sender: FDA-Public Use
  Company Number: JP-JNJFOC-20130107173

PATIENT
  Age: 56 Year
  Sex: Male

DRUGS (4)
  1. INTELENCE [Suspect]
     Indication: HIV INFECTION
     Route: 048
     Dates: start: 20130110
  2. INTELENCE [Suspect]
     Indication: HIV INFECTION
     Route: 048
     Dates: start: 201212, end: 20130107
  3. PREDNISOLONE [Concomitant]
     Indication: FLUSHING
     Route: 065
     Dates: start: 20130107
  4. PREDNISOLONE [Concomitant]
     Indication: FACE OEDEMA
     Route: 065
     Dates: start: 20130107

REACTIONS (6)
  - Eczema [Recovered/Resolved]
  - Cytomegalovirus chorioretinitis [Recovered/Resolved]
  - Pyrexia [Recovered/Resolved]
  - Face oedema [Recovered/Resolved]
  - Drug eruption [Recovered/Resolved]
  - Flushing [Recovered/Resolved]
